FAERS Safety Report 20362797 (Version 2)
Quarter: 2022Q2

REPORT INFORMATION
  Report Type: Spontaneous
  Country: NL (occurrence: NL)
  Receive Date: 20220121
  Receipt Date: 20220419
  Transmission Date: 20220721
  Serious: Yes (Death, Hospitalization, Other)
  Sender: FDA-Public Use
  Company Number: NL-PFIZER INC-202200056960

PATIENT
  Age: 63 Year
  Sex: Male

DRUGS (6)
  1. PACLITAXEL [Interacting]
     Active Substance: PACLITAXEL
     Indication: Chemotherapy
     Dosage: 100 MG/M2, CYCLIC (ON DAYS 1, 8, AND 15, IN A 28-DAY CYCLE)
     Dates: start: 2019
  2. RITONAVIR [Interacting]
     Active Substance: RITONAVIR
     Indication: Antiretroviral therapy
     Dosage: 100 MG, 1X/DAY
     Dates: start: 2019
  3. DARUNAVIR [Concomitant]
     Active Substance: DARUNAVIR
     Indication: Antiretroviral therapy
     Dosage: 800 MG, 1X/DAY
     Dates: start: 2019
  4. LAMIVUDINE [Concomitant]
     Active Substance: LAMIVUDINE
     Indication: Antiretroviral therapy
     Dosage: 150 MG, 1X/DAY
     Dates: start: 2019
  5. ABACAVIR HYDROCHLORIDE [Concomitant]
     Active Substance: ABACAVIR HYDROCHLORIDE
     Indication: Antiretroviral therapy
     Dosage: 600 MG, 1X/DAY
     Dates: start: 2019
  6. CARBOPLATIN [Concomitant]
     Active Substance: CARBOPLATIN
     Indication: Chemotherapy
     Dosage: UNK, CYCLIC (AUC=4 MG*MIN/ML, CALVERT, ON DAYS 1, 8, AND 15, IN A 28-DAY CYCLE)
     Dates: start: 2019

REACTIONS (3)
  - Drug interaction [Fatal]
  - Neutropenic sepsis [Fatal]
  - Escherichia infection [Fatal]

NARRATIVE: CASE EVENT DATE: 20190101
